FAERS Safety Report 9257313 (Version 1)
Quarter: 2013Q2

REPORT INFORMATION
  Report Type: Report from Study
  Country: BR (occurrence: BR)
  Receive Date: 20130426
  Receipt Date: 20130426
  Transmission Date: 20140414
  Serious: Yes (Death, Other)
  Sender: FDA-Public Use
  Company Number: PHHY2013BR041082

PATIENT
  Sex: Male
  Weight: 60 kg

DRUGS (2)
  1. STALEVO [Suspect]
     Dosage: 12.5/200/50 MG
  2. EXELON [Suspect]
     Dosage: 3 MG, UNK
     Route: 048

REACTIONS (3)
  - Pneumonia [Fatal]
  - Dementia Alzheimer^s type [Unknown]
  - Parkinson^s disease [Unknown]
